FAERS Safety Report 25155065 (Version 2)
Quarter: 2025Q2

REPORT INFORMATION
  Report Type: Spontaneous
  Country: US (occurrence: US)
  Receive Date: 20250403
  Receipt Date: 20250410
  Transmission Date: 20250717
  Serious: Yes (Other)
  Sender: MYLAN
  Company Number: US-MYLANLABS-2025M1027980

PATIENT
  Age: 74 Year
  Sex: Female
  Weight: 70.31 kg

DRUGS (4)
  1. SERTRALINE [Suspect]
     Active Substance: SERTRALINE HYDROCHLORIDE
     Indication: Depression
  2. CARVEDILOL [Concomitant]
     Active Substance: CARVEDILOL
  3. LISINOPRIL [Concomitant]
     Active Substance: LISINOPRIL
  4. CRESTOR [Concomitant]
     Active Substance: ROSUVASTATIN CALCIUM

REACTIONS (3)
  - Intraocular pressure increased [Not Recovered/Not Resolved]
  - Depression [Unknown]
  - Memory impairment [Unknown]

NARRATIVE: CASE EVENT DATE: 20250328
